FAERS Safety Report 6780121 (Version 4)
Quarter: 2012Q4

REPORT INFORMATION
  Report Type: 
  Country: US (occurrence: US)
  Receive Date: 20081007
  Receipt Date: 20121002
  Transmission Date: 20130627
  Serious: Yes (Hospitalization)
  Sender: FDA-Public Use
  Company Number: US-ALLERGAN-0812382US

PATIENT
  Age: 60 Year
  Sex: Female

DRUGS (3)
  1. BOTOX� [Suspect]
     Indication: BLEPHAROSPASM
     Dosage: UNK UNK, single
     Route: 030
     Dates: start: 20080902, end: 20080902
  2. BOTOX� [Suspect]
     Dosage: UNK, single
     Dates: start: 20070104, end: 20070104
  3. BOTOX� [Suspect]
     Dosage: UNK UNK, single
     Dates: start: 20061207, end: 20061207

REACTIONS (17)
  - Encephalitis [Recovered/Resolved]
  - Meningitis viral [Recovered/Resolved]
  - Back pain [Recovered/Resolved]
  - Pyrexia [Recovered/Resolved]
  - Fatigue [Unknown]
  - Lethargy [Unknown]
  - Vision blurred [Unknown]
  - Nausea [Unknown]
  - Dysarthria [Unknown]
  - Intention tremor [Unknown]
  - Asthenia [Unknown]
  - Ataxia [Unknown]
  - Urinary incontinence [Unknown]
  - Central nervous system lesion [Unknown]
  - Headache [Unknown]
  - Confusional state [Unknown]
  - Gait disturbance [Unknown]
